FAERS Safety Report 23401623 (Version 1)
Quarter: 2024Q1

REPORT INFORMATION
  Report Type: Report from Study
  Country: US (occurrence: None)
  Receive Date: 20240115
  Receipt Date: 20240115
  Transmission Date: 20240409
  Serious: Yes (Other)
  Sender: FDA-Public Use
  Company Number: 2024A006429

PATIENT
  Sex: Male
  Weight: 87.1 kg

DRUGS (26)
  1. CALQUENCE [Suspect]
     Active Substance: ACALABRUTINIB
     Indication: Chronic lymphocytic leukaemia
     Route: 048
     Dates: start: 20230823
  2. ASPIRIN [Concomitant]
     Active Substance: ASPIRIN
  3. ATORVASTATIN [Concomitant]
     Active Substance: ATORVASTATIN
  4. CARBIDOPA\LEVODOPA [Concomitant]
     Active Substance: CARBIDOPA\LEVODOPA
  5. LEVOTHYROXINE [Concomitant]
     Active Substance: LEVOTHYROXINE
  6. ISOSORBIDE [Concomitant]
     Active Substance: ISOSORBIDE
  7. HUMALOG [Concomitant]
     Active Substance: INSULIN LISPRO
  8. LANTUS [Concomitant]
     Active Substance: INSULIN GLARGINE
  9. GLYBURIDE [Concomitant]
     Active Substance: GLYBURIDE
  10. CLONAZEPAM [Concomitant]
     Active Substance: CLONAZEPAM
  11. COLACE [Concomitant]
     Active Substance: DOCUSATE SODIUM
  12. GABAPENTIN [Concomitant]
     Active Substance: GABAPENTIN
  13. METOPROLOL SUCCINATE [Concomitant]
     Active Substance: METOPROLOL SUCCINATE
  14. LOSARTAN [Concomitant]
     Active Substance: LOSARTAN
  15. VITAMINS [Concomitant]
     Active Substance: VITAMINS
  16. TACROLIMUS [Concomitant]
     Active Substance: TACROLIMUS
  17. ONGENTYS [Concomitant]
     Active Substance: OPICAPONE
  18. OMEPRAZOLE [Concomitant]
     Active Substance: OMEPRAZOLE
  19. VISION ELEMENTS [Concomitant]
  20. LOSARTAN [Concomitant]
     Active Substance: LOSARTAN
  21. ALLEGRA ALLERGY [Concomitant]
     Active Substance: FEXOFENADINE HYDROCHLORIDE
  22. TUMS [Concomitant]
     Active Substance: CALCIUM CARBONATE
  23. BISACODYL [Concomitant]
     Active Substance: BISACODYL
  24. MIRALAX [Concomitant]
     Active Substance: POLYETHYLENE GLYCOL 3350
  25. ONDANSETRON [Concomitant]
     Active Substance: ONDANSETRON
  26. TYLENOL 8 [Concomitant]

REACTIONS (4)
  - Fall [Unknown]
  - Mental status changes [Unknown]
  - Confusional state [Unknown]
  - Pyrexia [Unknown]
